FAERS Safety Report 6719573-9 (Version None)
Quarter: 2010Q2

REPORT INFORMATION
  Report Type: 
  Country: None (occurrence: None)
  Receive Date: 20100511
  Receipt Date: 20100427
  Transmission Date: 20101027
  Serious: Yes (Hospitalization)
  Sender: FDA-Public Use
  Company Number: US-ELI_LILLY_AND_COMPANY-US201004001083

PATIENT
  Sex: Female

DRUGS (14)
  1. FORTEO [Suspect]
     Indication: OSTEOPOROSIS
     Dosage: 20 UG, DAILY (1/D)
     Dates: start: 20100217, end: 20100218
  2. FORTEO [Suspect]
     Dosage: 20 UG, DAILY (1/D)
     Dates: start: 20100312
  3. NORVASC [Concomitant]
  4. LIPITOR [Concomitant]
  5. ZOLOFT [Concomitant]
  6. PRILOSEC [Concomitant]
  7. POTASSIUM CHLORIDE [Concomitant]
  8. VITAMIN D [Concomitant]
  9. CITRACAL [Concomitant]
  10. CENTRUM [Concomitant]
  11. FISH OIL [Concomitant]
  12. OXYCONTIN [Concomitant]
  13. OMEPRAZOLE [Concomitant]
  14. CALCIUM [Concomitant]

REACTIONS (9)
  - ARTHRITIS [None]
  - DRUG DOSE OMISSION [None]
  - DYSPHAGIA [None]
  - FALL [None]
  - HEADACHE [None]
  - OESOPHAGEAL DISORDER [None]
  - PAIN IN EXTREMITY [None]
  - PELVIC FRACTURE [None]
  - SPINAL FRACTURE [None]
